FAERS Safety Report 7898714-4 (Version None)
Quarter: 2011Q4

REPORT INFORMATION
  Report Type: 
  Country: None (occurrence: None)
  Receive Date: 20111107
  Receipt Date: 20111007
  Transmission Date: 20120403
  Serious: Yes (Other)
  Sender: FDA-Public Use
  Company Number: US-ABBOTT-11P-163-0841550-00

PATIENT
  Age: 64 Year
  Sex: Female
  Weight: 93.978 kg

DRUGS (7)
  1. LIPITOR [Suspect]
     Indication: BLOOD CHOLESTEROL INCREASED
     Dosage: FILM-COATED
     Route: 048
     Dates: start: 20110301, end: 20110527
  2. METFORMIN HCL [Suspect]
     Indication: DIABETES MELLITUS
     Route: 048
  3. TRICOR [Suspect]
     Indication: PRODUCT USED FOR UNKNOWN INDICATION
     Route: 048
  4. NORVASC [Suspect]
     Indication: BLOOD PRESSURE
     Dosage: FILM-COATED
  5. ATENOLOL [Suspect]
     Indication: BLOOD PRESSURE
     Route: 048
  6. BENICAR [Suspect]
     Indication: PRODUCT USED FOR UNKNOWN INDICATION
     Dosage: FILM-COATED
     Route: 048
  7. KLOR-CON [Suspect]
     Indication: MINERAL SUPPLEMENTATION
     Route: 048

REACTIONS (3)
  - OEDEMA PERIPHERAL [None]
  - MYALGIA [None]
  - DRUG INTERACTION [None]
